FAERS Safety Report 4468279-8 (Version None)
Quarter: 2004Q4

REPORT INFORMATION
  Report Type: 
  Country: None (occurrence: None)
  Receive Date: 20041004
  Receipt Date: 20040923
  Transmission Date: 20050328
  Serious: Yes (Death, Hospitalization)
  Sender: FDA-Public Use
  Company Number: 2004235342FR

PATIENT
  Age: 81 Year
  Sex: Male
  Weight: 60 kg

DRUGS (12)
  1. ALDACTONE [Suspect]
     Dosage: ORAL
     Route: 048
     Dates: start: 20040701, end: 20040803
  2. TRAMAL(TRAMADOL) CAPSULE [Suspect]
     Dates: start: 20040701, end: 20040803
  3. POTASSIUM CHLORIDE [Suspect]
     Dosage: ORAL
     Route: 048
     Dates: start: 20040723, end: 20040803
  4. LOGIRENE (AMILORIDE, FUROSEMIDE) TABLET [Suspect]
     Dosage: ORAL
     Route: 048
     Dates: start: 20040723, end: 20040803
  5. POLIFLU (ACETYLSALICYLATE LYSINE) POWDER [Suspect]
     Dates: start: 20040723, end: 20040803
  6. RAMIPRIL [Suspect]
     Dosage: ORAL
     Route: 048
     Dates: start: 20040723, end: 20040803
  7. BUFLOMEDIL(BUFLOMEDIL) [Suspect]
     Dates: start: 20040701, end: 20040803
  8. NADROPARIN CALCIUM (HEPARIN-FRACTION, CALCIUM SALT) [Suspect]
     Dates: start: 20040801, end: 20040803
  9. PLAVIX [Suspect]
     Dates: start: 20040729, end: 20040801
  10. PENTOXIFYLLINE [Concomitant]
  11. DIGOXIN [Concomitant]
  12. ENOXAPARIN SODIUM (HEPARIN-FRACTION, SODUM SALT) [Concomitant]

REACTIONS (10)
  - BLADDER DISTENSION [None]
  - BLOOD CREATINE PHOSPHOKINASE INCREASED [None]
  - CYANOSIS [None]
  - CYTOLYTIC HEPATITIS [None]
  - HEPATIC FAILURE [None]
  - HEPATITIS FULMINANT [None]
  - OEDEMA PERIPHERAL [None]
  - RENAL FAILURE ACUTE [None]
  - SHOCK [None]
  - SKIN ULCER [None]
